FAERS Safety Report 6914740-3 (Version None)
Quarter: 2010Q3

REPORT INFORMATION
  Report Type: 
  Country: None (occurrence: None)
  Receive Date: 20100804
  Receipt Date: 20100804
  Transmission Date: 20110219
  Serious: No
  Sender: FDA-Public Use
  Company Number: None

PATIENT
  Age: 58 Year
  Sex: Male

DRUGS (2)
  1. FENTANYL [Suspect]
     Dosage: IV
     Route: 042
     Dates: start: 20090317, end: 20090317
  2. MIDAZOLAM HCL [Suspect]
     Dosage: IV
     Route: 042
     Dates: start: 20090317, end: 20090317

REACTIONS (2)
  - RESPIRATORY DEPRESSION [None]
  - SEDATION [None]
